FAERS Safety Report 15076573 (Version 1)
Quarter: 2018Q2

REPORT INFORMATION
  Report Type: Report from Study
  Country: KR (occurrence: KR)
  Receive Date: 20180627
  Receipt Date: 20180627
  Transmission Date: 20180711
  Serious: Yes (Other)
  Sender: FDA-Public Use
  Company Number: KR-MYLANLABS-2018M1045766

PATIENT
  Age: 53 Year
  Sex: Female

DRUGS (6)
  1. TACROLIMUS. [Suspect]
     Active Substance: TACROLIMUS
     Indication: IMMUNOSUPPRESSANT DRUG THERAPY
     Dosage: THE ACCUMULATIVE DOSE WAS 11741MG AND AVERAGE DOSE WAS 5.5MG/DAY
     Route: 065
  2. AZATHIOPRINE. [Suspect]
     Active Substance: AZATHIOPRINE
     Indication: IMMUNOSUPPRESSANT DRUG THERAPY
     Dosage: THE ACCUMULATIVE DOSE WAS 118800MG AND AVERAGE DOSE WAS 78.5MG/DAY
     Route: 065
  3. CYCLOSPORIN [Suspect]
     Active Substance: CYCLOSPORINE
     Indication: IMMUNOSUPPRESSANT DRUG THERAPY
     Dosage: THE ACCUMULATIVE DOSE WAS 2800MG AND AVERAGE DOSE WAS 90.3 MG/DAY
     Route: 065
  4. SIROLIMUS. [Suspect]
     Active Substance: SIROLIMUS
     Indication: IMMUNOSUPPRESSANT DRUG THERAPY
     Dosage: THE ACCUMULATIVE DOSE WAS 2752MG AND AND AVERAGE DOSE WAS 1.6 MG/DAY
     Route: 065
  5. BASILIXIMAB [Suspect]
     Active Substance: BASILIXIMAB
     Indication: IMMUNOSUPPRESSANT DRUG THERAPY
     Dosage: ONE WEEK OF DAILY IV BASILIXIMAB
     Route: 042
  6. MYCOPHENOLATE MOFETIL. [Suspect]
     Active Substance: MYCOPHENOLATE MOFETIL
     Indication: IMMUNOSUPPRESSANT DRUG THERAPY
     Dosage: THE ACCUMULATIVE DOSE WAS 15380MG AND AVERAGE DOSE WAS 496.1 MG/DAY
     Route: 065

REACTIONS (1)
  - Keratinising squamous cell carcinoma of nasopharynx [Recovered/Resolved]
